FAERS Safety Report 12581999 (Version 1)
Quarter: 2016Q3

REPORT INFORMATION
  Report Type: Spontaneous
  Country: US (occurrence: US)
  Receive Date: 20160722
  Receipt Date: 20160722
  Transmission Date: 20161109
  Serious: Yes (Death, Other)
  Sender: FDA-Public Use
  Company Number: US-ASTRAZENECA-2016SE78557

PATIENT
  Sex: Male

DRUGS (1)
  1. BYDUREON [Suspect]
     Active Substance: EXENATIDE
     Dosage: 1 DOSE OF BYDUREON
     Route: 065

REACTIONS (3)
  - Neoplasm malignant [Unknown]
  - Drug dose omission [Unknown]
  - Death [Fatal]
